FAERS Safety Report 8218857-5 (Version None)
Quarter: 2012Q1

REPORT INFORMATION
  Report Type: 
  Country: None (occurrence: None)
  Receive Date: 20120319
  Receipt Date: 20120314
  Transmission Date: 20120608
  Serious: Yes (Death, Hospitalization, Other)
  Sender: FDA-Public Use
  Company Number: PHHY2012BR022725

PATIENT
  Sex: Male

DRUGS (7)
  1. EXELON [Suspect]
     Dosage: 9.5 MG, (18MG/10CM2 , 1 PATCH DAILY)
     Route: 062
  2. LASIX [Concomitant]
     Indication: ENDOCARDITIS
     Dosage: 40 MG, QD
     Route: 048
     Dates: start: 20050101
  3. ALDACTONE [Concomitant]
     Indication: ENDOCARDITIS
     Dosage: 100 MG, QD
     Route: 048
     Dates: start: 20050101
  4. EXELON [Suspect]
     Indication: SENILE DEMENTIA
     Dosage: 4.6 MG, (9MG/5CM2, 1 PATCH DAILY)
     Route: 062
     Dates: start: 20080101
  5. ZYLORIC ^FRESENIUS^ [Concomitant]
     Indication: ENDOCARDITIS
     Dosage: 100 MG, QD
     Route: 048
     Dates: start: 20050101
  6. PANTOPRAZOLE [Concomitant]
     Indication: ABDOMINAL DISCOMFORT
     Dosage: 40 MG, QD
     Route: 048
     Dates: start: 20050101
  7. ATENOLOL AND CHLORTHALIDONE [Concomitant]
     Indication: ENDOCARDITIS
     Dosage: 75 MG, QD
     Route: 048
     Dates: start: 20050101

REACTIONS (4)
  - URINARY TRACT INFECTION [None]
  - SEPTIC SHOCK [None]
  - PNEUMONIA [None]
  - GENERAL PHYSICAL HEALTH DETERIORATION [None]
